FAERS Safety Report 11064500 (Version 3)
Quarter: 2015Q2

REPORT INFORMATION
  Report Type: Spontaneous
  Country: US (occurrence: US)
  Receive Date: 20150424
  Receipt Date: 20150612
  Transmission Date: 20150821
  Serious: Yes (Hospitalization)
  Sender: FDA-Public Use
  Company Number: US-PFIZER INC-2015137777

PATIENT
  Age: 87 Year
  Sex: Female
  Weight: 66 kg

DRUGS (4)
  1. ZANTAC [Concomitant]
     Active Substance: RANITIDINE HYDROCHLORIDE
     Dosage: 75 MG, UNK
  2. LEVOXYL [Suspect]
     Active Substance: LEVOTHYROXINE SODIUM
     Indication: HYPOTHYROIDISM
     Dosage: 125 ?G (2 AND A HALF TABLETS OF 50 MCG), 1X/DAY
     Route: 048
     Dates: start: 20140315, end: 201503
  3. LEVOXYL [Suspect]
     Active Substance: LEVOTHYROXINE SODIUM
     Dosage: 25 ?G (HALF TABLET OF 50 MCG)
     Route: 048
     Dates: end: 20150415
  4. IBUPROFEN. [Concomitant]
     Active Substance: IBUPROFEN
     Dosage: 200 MG, UNK

REACTIONS (7)
  - Intentional product use issue [Not Recovered/Not Resolved]
  - Extrasystoles [Not Recovered/Not Resolved]
  - Heart rate irregular [Not Recovered/Not Resolved]
  - Vision blurred [Recovered/Resolved]
  - Arthralgia [Recovering/Resolving]
  - Dyspnoea [Recovered/Resolved]
  - Palpitations [Not Recovered/Not Resolved]
